FAERS Safety Report 25251228 (Version 8)
Quarter: 2025Q3

REPORT INFORMATION
  Report Type: Spontaneous
  Country: EU (occurrence: EU)
  Receive Date: 20250429
  Receipt Date: 20250807
  Transmission Date: 20251021
  Serious: Yes (Hospitalization, Other)
  Sender: SANDOZ
  Company Number: EU-TEVA-VS-3320280

PATIENT
  Age: 28 Year
  Sex: Female

DRUGS (16)
  1. BETAMETHASONE [Suspect]
     Active Substance: BETAMETHASONE
     Indication: Drug reaction with eosinophilia and systemic symptoms
     Route: 061
  2. CEFTRIAXONE [Suspect]
     Active Substance: CEFTRIAXONE
     Indication: Prophylaxis
     Route: 042
  3. CEFTRIAXONE [Suspect]
     Active Substance: CEFTRIAXONE
     Indication: Antibiotic prophylaxis
  4. DICLOFENAC [Suspect]
     Active Substance: DICLOFENAC
     Indication: Prophylaxis
     Route: 065
  5. DICLOFENAC [Suspect]
     Active Substance: DICLOFENAC
     Route: 048
  6. FOLIC ACID [Suspect]
     Active Substance: FOLIC ACID
     Indication: Pregnancy
     Route: 065
  7. IRON [Suspect]
     Active Substance: IRON
     Indication: Pregnancy
     Route: 048
  8. METHYLDOPA [Suspect]
     Active Substance: METHYLDOPA
     Indication: Hypertension
     Route: 065
  9. METHYLPREDNISOLONE [Suspect]
     Active Substance: METHYLPREDNISOLONE
     Indication: Drug reaction with eosinophilia and systemic symptoms
     Route: 065
  10. METHYLPREDNISOLONE [Suspect]
     Active Substance: METHYLPREDNISOLONE
     Route: 065
  11. ACETAMINOPHEN [Suspect]
     Active Substance: ACETAMINOPHEN
     Indication: Symptomatic treatment
     Route: 065
  12. ACETAMINOPHEN [Suspect]
     Active Substance: ACETAMINOPHEN
     Indication: Asthenia
  13. ACETAMINOPHEN [Suspect]
     Active Substance: ACETAMINOPHEN
     Indication: Pyrexia
  14. FOLIC ACID [Concomitant]
     Active Substance: FOLIC ACID
     Indication: Product used for unknown indication
     Route: 065
  15. IRON [Concomitant]
     Active Substance: IRON
     Indication: Product used for unknown indication
     Route: 048
  16. METHYLDOPA [Concomitant]
     Active Substance: METHYLDOPA
     Indication: Product used for unknown indication
     Route: 048

REACTIONS (15)
  - Drug reaction with eosinophilia and systemic symptoms [Recovered/Resolved]
  - Asthenia [Unknown]
  - Pyrexia [Unknown]
  - Rash maculo-papular [Recovered/Resolved]
  - Pruritus [Unknown]
  - Ascites [Unknown]
  - Colitis [Unknown]
  - Therapy non-responder [Unknown]
  - Odynophagia [Recovered/Resolved]
  - Hepatomegaly [Unknown]
  - Myalgia [Recovered/Resolved]
  - Cough [Recovered/Resolved]
  - Diarrhoea [Unknown]
  - Maternal exposure during breast feeding [Recovered/Resolved]
  - Exposure during pregnancy [Unknown]
